FAERS Safety Report 24268285 (Version 1)
Quarter: 2024Q3

REPORT INFORMATION
  Report Type: Spontaneous
  Country: US (occurrence: US)
  Receive Date: 20240830
  Receipt Date: 20240830
  Transmission Date: 20241016
  Serious: No
  Sender: PFIZER
  Company Number: US-PFIZER INC-202400245802

PATIENT
  Age: 53 Year
  Sex: Female
  Weight: 123 kg

DRUGS (8)
  1. VYNDAMAX [Suspect]
     Active Substance: TAFAMIDIS
     Indication: Amyloidosis
     Dosage: ONE 61 MG CAPSULE ONCE DAILY
     Route: 048
  2. VYNDAMAX [Suspect]
     Active Substance: TAFAMIDIS
     Indication: Cardiac amyloidosis
  3. XANAX [Concomitant]
     Active Substance: ALPRAZOLAM
     Dosage: TAKE 1 TABLET (0.5 MG TOTAL) AS NEEDED
     Route: 048
  4. LYRICA [Concomitant]
     Active Substance: PREGABALIN
     Dosage: 1 CAPSULE IN THE MORNING AND 1 CAPSULE AT NOON AND 1 CAPSULE IN THE EVENING
     Route: 048
  5. LYRICA [Concomitant]
     Active Substance: PREGABALIN
     Dosage: TAKE TWO CAPSULES IN THE A.M. AND THREE CAPSULES AT BEDTIME
     Route: 048
  6. CRESTOR [Concomitant]
     Active Substance: ROSUVASTATIN CALCIUM
     Indication: Hyperlipidaemia
     Dosage: TAKE 1 TABLET (20 MG TOTAL) DAILY
     Route: 048
  7. AMVUTTRA [Concomitant]
     Active Substance: VUTRISIRAN
     Indication: Polyneuropathy
     Dosage: UNK
  8. LISINOPRIL [Concomitant]
     Active Substance: LISINOPRIL
     Indication: Essential hypertension
     Dosage: UNK

REACTIONS (4)
  - Fatigue [Unknown]
  - Arthralgia [Unknown]
  - Dyspnoea [Unknown]
  - Asthenia [Unknown]
